FAERS Safety Report 7203052 (Version 6)
Quarter: 2013Q4

REPORT INFORMATION
  Report Type: Report from Study
  Country: JP (occurrence: JP)
  Receive Date: 20091207
  Receipt Date: 20131023
  Transmission Date: 20140711
  Serious: Yes (Death, Life-Threatening, Hospitalization, Disabling, Other)
  Sender: FDA-Public Use
  Company Number: JP-BRISTOL-MYERS SQUIBB COMPANY-14718795

PATIENT
  Age: 66 Year
  Sex: Female
  Weight: 44 kg

DRUGS (8)
  1. SPRYCEL [Suspect]
     Indication: CHRONIC MYELOID LEUKAEMIA
     Dosage: DURATION OF THERAPY: 14D;09-22JUL09;23JUL-27JUL09(50MG1/2DAY).
     Route: 048
     Dates: start: 20090709, end: 20090727
  2. NILOTINIB [Suspect]
     Indication: CHRONIC MYELOID LEUKAEMIA
     Dosage: CAPSULE
     Route: 048
     Dates: start: 20090410, end: 20090708
  3. NIZATIDINE [Concomitant]
     Dosage: TAB
     Route: 048
     Dates: start: 20090709, end: 20090725
  4. ITRACONAZOLE [Concomitant]
     Dosage: SOLUTION
     Route: 048
     Dates: start: 20090709, end: 20090725
  5. BAKTAR [Concomitant]
     Indication: PROPHYLAXIS
     Dosage: 1 DF: 2 TAB;FORMULATION :TAB
     Route: 048
     Dates: start: 20090709, end: 20090725
  6. MYSLEE [Concomitant]
     Dosage: TAB
     Route: 048
     Dates: start: 20090709, end: 20090725
  7. ALLOPURINOL [Concomitant]
     Indication: PROPHYLAXIS
     Route: 048
     Dates: start: 20090713, end: 20090725
  8. EPINEPHRINE [Concomitant]
     Dosage: FORMULATION-INJ;1 DF: 3A/DAY
     Route: 042
     Dates: start: 20090725, end: 20090725

REACTIONS (10)
  - Pneumonia [Fatal]
  - Pleural effusion [Fatal]
  - Cardio-respiratory arrest [Fatal]
  - Neutrophil count decreased [Not Recovered/Not Resolved]
  - Febrile neutropenia [Unknown]
  - White blood cell count decreased [Not Recovered/Not Resolved]
  - Platelet count decreased [Not Recovered/Not Resolved]
  - Anaemia [Not Recovered/Not Resolved]
  - Generalised oedema [Not Recovered/Not Resolved]
  - Local swelling [Recovered/Resolved]
